FAERS Safety Report 4982054-7 (Version None)
Quarter: 2006Q2

REPORT INFORMATION
  Report Type: 
  Country: None (occurrence: None)
  Receive Date: 20060425
  Receipt Date: 20051019
  Transmission Date: 20061013
  Serious: Yes (Death)
  Sender: FDA-Public Use
  Company Number: US-MERCK-0510USA08294

PATIENT
  Age: 74 Year
  Sex: Male
  Weight: 80 kg

DRUGS (2)
  1. VIOXX [Suspect]
     Route: 048
     Dates: start: 20000101, end: 20020101
  2. [THERAPY UNSPECIFIED] [Concomitant]
     Route: 065

REACTIONS (5)
  - ACUTE MYOCARDIAL INFARCTION [None]
  - ARTERIOSCLEROSIS CORONARY ARTERY [None]
  - CARDIAC ARREST [None]
  - HYPERTENSION [None]
  - HYPERTHYROIDISM [None]
